FAERS Safety Report 7919883-3 (Version None)
Quarter: 2011Q4

REPORT INFORMATION
  Report Type: 
  Country: None (occurrence: None)
  Receive Date: 20111115
  Receipt Date: 20111101
  Transmission Date: 20120403
  Serious: Yes (Other)
  Sender: FDA-Public Use
  Company Number: 1000025390

PATIENT
  Age: 68 Year
  Sex: Female

DRUGS (3)
  1. REFLEX (PICOLAMINE SALICYLATE) (PICOLAMINE SALICYLATE) [Concomitant]
  2. LEXAPRO [Suspect]
     Indication: DEPRESSION
     Dosage: 10 MG (10 MG, 1 IN 1 D), ORAL
     Route: 048
  3. WYPAX (LORAZEPAM) (LORAZEPAM) [Concomitant]

REACTIONS (3)
  - NIGHT SWEATS [None]
  - PALPITATIONS [None]
  - CHILLS [None]
